FAERS Safety Report 25239458 (Version 1)
Quarter: 2025Q2

REPORT INFORMATION
  Report Type: Spontaneous
  Country: US (occurrence: None)
  Receive Date: 20250424
  Receipt Date: 20250424
  Transmission Date: 20250717
  Serious: Yes (Life-Threatening, Hospitalization)
  Sender: FDA-CTU
  Company Number: None

PATIENT
  Age: 76 Year
  Sex: Male
  Weight: 33 kg

DRUGS (1)
  1. EMPAGLIFLOZIN [Suspect]
     Active Substance: EMPAGLIFLOZIN
     Indication: Cardiac failure congestive
     Dosage: FREQUENCY : DAILY;?
     Route: 048
     Dates: end: 20250222

REACTIONS (5)
  - Euglycaemic diabetic ketoacidosis [None]
  - Vision blurred [None]
  - Dysarthria [None]
  - Metabolic acidosis [None]
  - Urinary tract infection [None]

NARRATIVE: CASE EVENT DATE: 20250222
